FAERS Safety Report 10055861 (Version 3)
Quarter: 2014Q2

REPORT INFORMATION
  Report Type: Spontaneous
  Country: CH (occurrence: CH)
  Receive Date: 20140403
  Receipt Date: 20140507
  Transmission Date: 20141212
  Serious: Yes (Hospitalization, Other)
  Sender: FDA-Public Use
  Company Number: CH-JNJFOC-20140309741

PATIENT
  Age: 74 Year
  Sex: Male
  Weight: 83 kg

DRUGS (4)
  1. SIMPONI [Suspect]
     Indication: COLITIS ULCERATIVE
     Dosage: 100 MG 2 DOSE UNITS, ONCE
     Route: 058
     Dates: start: 20140305
  2. IMUREK [Concomitant]
     Indication: COLITIS ULCERATIVE
     Dosage: HALF A TABLET, BID
     Route: 048
     Dates: start: 201309
  3. SULFASALAZINE [Concomitant]
     Indication: COLITIS ULCERATIVE
     Dosage: 3200MG
     Route: 048
     Dates: start: 201309
  4. PREDNISONE [Concomitant]
     Indication: COLITIS ULCERATIVE
     Dosage: HALF A TABLET, BID
     Route: 048
     Dates: start: 20140303

REACTIONS (2)
  - Thrombotic stroke [Recovering/Resolving]
  - Paraesthesia [Not Recovered/Not Resolved]
